FAERS Safety Report 9965783 (Version 1)
Quarter: 2014Q1

REPORT INFORMATION
  Report Type: Report from Study
  Country: US (occurrence: US)
  Receive Date: 20140305
  Receipt Date: 20140305
  Transmission Date: 20141002
  Serious: Yes (Other)
  Sender: FDA-Public Use
  Company Number: US-ABBVIE-13P-163-1123484-00

PATIENT
  Age: 67 Year
  Sex: Male

DRUGS (9)
  1. HUMIRA [Suspect]
     Indication: RHEUMATOID ARTHRITIS
     Dates: start: 2006
  2. HUMIRA [Suspect]
     Indication: COLITIS ULCERATIVE
  3. STARLIX [Concomitant]
     Indication: DIABETES MELLITUS
  4. GLIMEPIRIDE [Concomitant]
     Indication: DIABETES MELLITUS
  5. JANUVIA [Concomitant]
     Indication: DIABETES MELLITUS
  6. LOTREL [Concomitant]
     Indication: HYPERTENSION
     Dosage: 10/40MG
  7. BYSTOLIC [Concomitant]
     Indication: HYPERTENSION
     Dosage: AT BEDTIME
  8. ALPHAGAN [Concomitant]
     Indication: GLAUCOMA
  9. TRUSOPT [Concomitant]
     Indication: GLAUCOMA

REACTIONS (5)
  - Malignant melanoma [Recovered/Resolved]
  - Malignant melanoma [Not Recovered/Not Resolved]
  - Lacrimation increased [Unknown]
  - Ocular hyperaemia [Unknown]
  - Ocular hyperaemia [Unknown]
